FAERS Safety Report 4365400-7 (Version None)
Quarter: 2004Q2

REPORT INFORMATION
  Report Type: 
  Country: None (occurrence: None)
  Receive Date: 20040525
  Receipt Date: 20040525
  Transmission Date: 20050107
  Serious: Yes (Hospitalization)
  Sender: FDA-Public Use
  Company Number: None

PATIENT
  Age: 62 Year
  Sex: Female
  Weight: 83.9154 kg

DRUGS (12)
  1. 13-CIS RETINOIC ACID [Suspect]
     Indication: OVARIAN CANCER METASTATIC
     Dosage: 9 MG PO QD (D1-D4)
     Route: 048
     Dates: start: 20040323, end: 20040324
  2. 13-CIS RETINOIC ACID [Suspect]
     Indication: UTERINE CANCER
     Dosage: 9 MG PO QD (D1-D4)
     Route: 048
     Dates: start: 20040323, end: 20040324
  3. A INTERFERON [Suspect]
     Indication: OVARIAN CANCER METASTATIC
     Dosage: 12 MU SC QD (D1-D4)
     Route: 058
     Dates: start: 20040323, end: 20040324
  4. A INTERFERON [Suspect]
     Indication: UTERINE CANCER
     Dosage: 12 MU SC QD (D1-D4)
     Route: 058
     Dates: start: 20040323, end: 20040324
  5. TAXOTERE [Suspect]
     Indication: OVARIAN CANCER METASTATIC
     Dosage: 98 MG IV ONCE(D2)
     Route: 042
     Dates: start: 20040324, end: 20040324
  6. TAXOTERE [Suspect]
     Indication: UTERINE CANCER
     Dosage: 98 MG IV ONCE(D2)
     Route: 042
     Dates: start: 20040324, end: 20040324
  7. ESTRAMUSTINE [Suspect]
     Indication: OVARIAN CANCER METASTATIC
     Dosage: 840 MG PO TID(D1-D5)
     Route: 048
     Dates: start: 20040323, end: 20040324
  8. ESTRAMUSTINE [Suspect]
     Indication: UTERINE CANCER
     Dosage: 840 MG PO TID(D1-D5)
     Route: 048
     Dates: start: 20040323, end: 20040324
  9. ZOLOFT [Concomitant]
     Indication: UTERINE CANCER
  10. ZOFRAN [Concomitant]
     Indication: UTERINE CANCER
  11. OXYCONTIN [Concomitant]
     Indication: UTERINE CANCER
  12. OXYCODONE [Concomitant]

REACTIONS (4)
  - CONSTIPATION [None]
  - HERNIA PAIN [None]
  - NAUSEA [None]
  - VOMITING [None]
